FAERS Safety Report 5522793-2 (Version None)
Quarter: 2007Q4

REPORT INFORMATION
  Report Type: 
  Country: None (occurrence: None)
  Receive Date: 20071120
  Receipt Date: 20071115
  Transmission Date: 20080405
  Serious: Yes (Hospitalization)
  Sender: FDA-Public Use
  Company Number: NL-ROXANE LABORATORIES, INC-2007-BP-24531RO

PATIENT
  Age: 25 Year
  Sex: Female

DRUGS (7)
  1. CITALOPRAM [Suspect]
     Indication: DEPRESSION
  2. CITALOPRAM [Suspect]
  3. CLOZAPINE [Suspect]
     Indication: SCHIZOAFFECTIVE DISORDER
  4. RISPERIDONE [Suspect]
     Indication: SCHIZOAFFECTIVE DISORDER
  5. VALPROIC ACID [Suspect]
     Indication: SCHIZOAFFECTIVE DISORDER
  6. TEMAZEPAM [Suspect]
  7. CHLORPROTHIXENE [Concomitant]
     Indication: PSYCHOTIC DISORDER

REACTIONS (9)
  - DEPRESSION [None]
  - DIZZINESS [None]
  - DRUG INTERACTION [None]
  - DRUG LEVEL INCREASED [None]
  - DYSPNOEA [None]
  - HALLUCINATION, AUDITORY [None]
  - HALLUCINATION, VISUAL [None]
  - PSYCHOTIC DISORDER [None]
  - WEIGHT INCREASED [None]
